FAERS Safety Report 4802913-5 (Version None)
Quarter: 2005Q4

REPORT INFORMATION
  Report Type: 
  Country: None (occurrence: None)
  Receive Date: 20051019
  Receipt Date: 20051012
  Transmission Date: 20060501
  Serious: Yes (Other)
  Sender: FDA-Public Use
  Company Number: 200519074GDDC

PATIENT
  Age: 65 Year
  Sex: Female

DRUGS (7)
  1. ARAVA [Suspect]
     Indication: RHEUMATOID ARTHRITIS
     Route: 048
     Dates: start: 20050602
  2. PARACETAMOL [Concomitant]
     Dosage: DOSE: UNK
  3. DAPA-TABS [Concomitant]
     Dosage: DOSE: UNK
  4. CALTRATE [Concomitant]
     Dosage: DOSE: UNK
  5. FOLIC ACID [Concomitant]
     Dosage: DOSE: UNK
  6. FISH OIL [Concomitant]
     Dosage: DOSE: UNK
  7. ASPIRIN [Concomitant]
     Dosage: DOSE: UNK

REACTIONS (1)
  - LIVER FUNCTION TEST ABNORMAL [None]
